FAERS Safety Report 9265301 (Version 2)
Quarter: 2013Q2

REPORT INFORMATION
  Report Type: Report from Study
  Country: DE (occurrence: DE)
  Receive Date: 20130501
  Receipt Date: 20130513
  Transmission Date: 20140414
  Serious: Yes (Hospitalization)
  Sender: FDA-Public Use
  Company Number: DE-CELGENEUS-062-21660-13043655

PATIENT
  Age: 69 Year
  Sex: Female
  Weight: 90 kg

DRUGS (3)
  1. ABRAXANE [Suspect]
     Indication: BREAST CANCER
     Route: 041
     Dates: start: 20130121
  2. ABRAXANE [Suspect]
     Route: 041
     Dates: start: 20130310
  3. ABRAXANE [Suspect]
     Route: 041
     Dates: start: 20130318

REACTIONS (1)
  - Humerus fracture [Unknown]
